FAERS Safety Report 11394800 (Version 1)
Quarter: 2015Q3

REPORT INFORMATION
  Report Type: Spontaneous
  Country: US (occurrence: US)
  Receive Date: 20150819
  Receipt Date: 20150819
  Transmission Date: 20151125
  Serious: Yes (Hospitalization)
  Sender: FDA-Public Use
  Company Number: US-SA-2015SA121627

PATIENT
  Age: 61 Year
  Sex: Male

DRUGS (2)
  1. AMBIEN [Suspect]
     Active Substance: ZOLPIDEM TARTRATE
     Dosage: DOSE- TWO DF OF 5MG TABLETS
     Route: 065
  2. AMBIEN [Suspect]
     Active Substance: ZOLPIDEM TARTRATE
     Route: 065

REACTIONS (8)
  - Dyspnoea [Not Recovered/Not Resolved]
  - Headache [Not Recovered/Not Resolved]
  - Hallucination [Not Recovered/Not Resolved]
  - Somnambulism [Not Recovered/Not Resolved]
  - Drug ineffective [Unknown]
  - Overdose [Unknown]
  - Eye disorder [Not Recovered/Not Resolved]
  - Tinnitus [Not Recovered/Not Resolved]
